FAERS Safety Report 16127846 (Version 1)
Quarter: 2019Q1

REPORT INFORMATION
  Report Type: Spontaneous
  Country: US (occurrence: US)
  Receive Date: 20190225
  Receipt Date: 20190225
  Transmission Date: 20190418
  Serious: Yes (Death)
  Sender: FDA-Public Use
  Company Number: None

PATIENT
  Age: 75 Year
  Sex: Female

DRUGS (22)
  1. FOLIC ACID 1 MG [Concomitant]
  2. PREVASTATIN 40 MG [Concomitant]
  3. TRADJENTA 5 MG [Concomitant]
  4. TACROLIMUS 0.5MG  CAPSULE [Suspect]
     Active Substance: TACROLIMUS
     Indication: LUNG TRANSPLANT
     Dosage: ?          OTHER DOSE:2 CAPS AM AND 2CAPS IN PM ;?
     Route: 048
     Dates: start: 20170106
  5. AZITHROMYCIN 250MG [Concomitant]
     Active Substance: AZITHROMYCIN ANHYDROUS
  6. PRAVASTATIN 20 MG [Concomitant]
     Active Substance: PRAVASTATIN
  7. MONTELUKAST 10 MG [Concomitant]
     Active Substance: MONTELUKAST SODIUM
  8. AMLODIPINE [Concomitant]
     Active Substance: AMLODIPINE BESYLATE
  9. ASPIRIN 81 MG EC [Concomitant]
     Active Substance: ASPIRIN
  10. METAPROLOL SUC 25 MG ER TAB [Concomitant]
  11. PREDNISONE 10 MG [Concomitant]
     Active Substance: PREDNISONE
  12. CARVEDILOL 6.25MG [Concomitant]
     Active Substance: CARVEDILOL
  13. METOPROLOL TAB 50MG ER [Concomitant]
  14. SULFAMETHOX POWDER [Concomitant]
  15. AZITHROMYCIN 250 MG [Concomitant]
     Active Substance: AZITHROMYCIN ANHYDROUS
  16. MYCOPHENOLATE 250MG CAPSULES [Suspect]
     Active Substance: MYCOPHENOLATE MOFETIL
     Indication: LUNG TRANSPLANT
     Route: 048
     Dates: start: 20180212
  17. PANTOPRAZOLE 20MG [Concomitant]
     Active Substance: PANTOPRAZOLE SODIUM
  18. CENTRUM CHEWABLE WOMEN [Concomitant]
  19. CLONADINE 0.1 MG [Concomitant]
  20. VALGANCICLOVIR 450 MG [Concomitant]
  21. XARELTO [Concomitant]
     Active Substance: RIVAROXABAN
  22. CLOPIDOGREL [Concomitant]
     Active Substance: CLOPIDOGREL BISULFATE

REACTIONS (1)
  - Death [None]

NARRATIVE: CASE EVENT DATE: 20190216
